FAERS Safety Report 6307044-3 (Version None)
Quarter: 2009Q3

REPORT INFORMATION
  Report Type: 
  Country: None (occurrence: None)
  Receive Date: 20090812
  Receipt Date: 20090804
  Transmission Date: 20100115
  Serious: Yes (Hospitalization, Other)
  Sender: FDA-Public Use
  Company Number: PHHY2009BR32509

PATIENT
  Age: 76 Year
  Sex: Female

DRUGS (2)
  1. EXELON [Suspect]
     Indication: AMNESIA
     Dosage: 1 DF, BID
     Route: 048
  2. RISPERIDONE [Concomitant]
     Indication: INSOMNIA
     Dosage: 0.5 DF, QHS
     Route: 048

REACTIONS (5)
  - ANAEMIA [None]
  - BONE NEOPLASM MALIGNANT [None]
  - OSTEOPOROSIS [None]
  - SPINAL FRACTURE [None]
  - WEIGHT DECREASED [None]
